FAERS Safety Report 8939265 (Version 2)
Quarter: 2012Q4

REPORT INFORMATION
  Report Type: 
  Country: US (occurrence: US)
  Receive Date: 20121203
  Receipt Date: 20121217
  Transmission Date: 20130627
  Serious: No
  Sender: FDA-Public Use
  Company Number: US-PFIZER INC-2012301101

PATIENT
  Age: 57 Year
  Sex: Male
  Weight: 88.44 kg

DRUGS (4)
  1. NEURONTIN [Suspect]
     Indication: PAIN IN LEG
     Dosage: 800 mg, 3x/day
     Dates: start: 2011, end: 2012
  2. PRISTIQ [Suspect]
     Indication: NEUROPATHY
     Dosage: 50 mg, daily
     Dates: start: 2012
  3. TRAMADOL HCL [Suspect]
     Indication: PAIN
     Dosage: 50 mg, every 6 hours
     Dates: start: 2011, end: 2012
  4. NOVOLOG MIX 70/30 [Concomitant]
     Indication: GLUCOSE HIGH
     Dosage: UNK, 3x/day

REACTIONS (1)
  - Pain in extremity [Not Recovered/Not Resolved]
